FAERS Safety Report 7119233-9 (Version None)
Quarter: 2010Q4

REPORT INFORMATION
  Report Type: 
  Country: None (occurrence: None)
  Receive Date: 20101028
  Receipt Date: 20100906
  Transmission Date: 20110411
  Serious: Yes (Death)
  Sender: FDA-Public Use
  Company Number: A-US2010-39634

PATIENT
  Age: 58 Year
  Sex: Female

DRUGS (1)
  1. EPOPROSTENOL SODIUM [Suspect]
     Indication: PULMONARY ARTERIAL HYPERTENSION
     Dosage: IV DRIP
     Route: 041
     Dates: end: 20100823

REACTIONS (1)
  - PULMONARY ARTERIAL HYPERTENSION [None]
